FAERS Safety Report 19337233 (Version 1)
Quarter: 2021Q2

REPORT INFORMATION
  Report Type: Spontaneous
  Country: US (occurrence: US)
  Receive Date: 20210529
  Receipt Date: 20210529
  Transmission Date: 20210717
  Serious: Yes (Other)
  Sender: FDA-Public Use
  Company Number: US-PURDUE-USA-2020-0216208

PATIENT
  Sex: Male

DRUGS (8)
  1. MS CONTIN [Suspect]
     Active Substance: MORPHINE SULFATE
     Indication: TOOTH DISORDER
     Dosage: UNKNOWN
     Route: 048
  2. HYDROCODONE BITARTRATE AND ACETAMINOPHEN [Suspect]
     Active Substance: ACETAMINOPHEN\HYDROCODONE BITARTRATE
     Indication: TOOTH DISORDER
     Dosage: UNKNOWN
     Route: 048
  3. OXYCODONE HCL CR TABLETS (SIMILAR TO NDA 22?272) [Suspect]
     Active Substance: OXYCODONE HYDROCHLORIDE
     Indication: TOOTH DISORDER
     Dosage: UNKNOWN
     Route: 048
  4. OXYCODONE/ ACETAMINOPHEN TABLETS [Suspect]
     Active Substance: ACETAMINOPHEN\OXYCODONE HYDROCHLORIDE
     Indication: TOOTH DISORDER
     Dosage: UNKNOWN
     Route: 048
  5. HYDROMORPHONE TABLETS [Suspect]
     Active Substance: HYDROMORPHONE
     Indication: TOOTH DISORDER
     Dosage: UNKNOWN
     Route: 048
  6. TRAMADOL CR TABLETS (RHODES 21?745) [Suspect]
     Active Substance: TRAMADOL
     Indication: TOOTH DISORDER
     Dosage: UNKNOWN
     Route: 048
  7. OXYCODONE HCL TABLETS (RHODES 91?490) [Suspect]
     Active Substance: OXYCODONE HYDROCHLORIDE
     Indication: TOOTH DISORDER
     Dosage: UNKNOWN
     Route: 048
  8. OXYCONTIN [Suspect]
     Active Substance: OXYCODONE HYDROCHLORIDE
     Indication: TOOTH DISORDER
     Dosage: UNKNOWN
     Route: 048

REACTIONS (1)
  - Drug dependence [Unknown]
